FAERS Safety Report 21661355 (Version 1)
Quarter: 2022Q4

REPORT INFORMATION
  Report Type: Spontaneous
  Country: US (occurrence: US)
  Receive Date: 20221130
  Receipt Date: 20221130
  Transmission Date: 20230113
  Serious: Yes (Other)
  Sender: FDA-Public Use
  Company Number: US-CIPLA LTD.-2022US06902

PATIENT
  Age: 40 Year
  Sex: Female

DRUGS (10)
  1. CYCLOPHOSPHAMIDE [Suspect]
     Active Substance: CYCLOPHOSPHAMIDE
     Indication: B precursor type acute leukaemia
     Dosage: UNK, CYCLE 1 A
     Route: 065
     Dates: start: 2018
  2. CYCLOPHOSPHAMIDE [Suspect]
     Active Substance: CYCLOPHOSPHAMIDE
     Dosage: UNK, CYCLE 1 B
     Route: 065
     Dates: start: 2018
  3. DAUNORUBICIN [Suspect]
     Active Substance: DAUNORUBICIN
     Indication: B precursor type acute leukaemia
     Dosage: UNK, CYCLE 1 A
     Route: 065
     Dates: start: 2018
  4. DAUNORUBICIN [Suspect]
     Active Substance: DAUNORUBICIN
     Dosage: UNK, CYCLE 1 B
     Route: 065
     Dates: start: 2018
  5. VINCRISTINE [Suspect]
     Active Substance: VINCRISTINE
     Indication: B precursor type acute leukaemia
     Dosage: UNK, CYCLE 1 A
     Route: 065
     Dates: start: 2018
  6. VINCRISTINE [Suspect]
     Active Substance: VINCRISTINE
     Dosage: UNK, CYCLE 1 B
     Route: 065
     Dates: start: 2018
  7. DEXAMETHASONE [Suspect]
     Active Substance: DEXAMETHASONE
     Indication: B precursor type acute leukaemia
     Dosage: UNK, CYCLE 1 A
     Route: 065
     Dates: start: 2018
  8. DEXAMETHASONE [Suspect]
     Active Substance: DEXAMETHASONE
     Dosage: UNK, CYCLE 1 B
     Route: 065
     Dates: start: 2018
  9. CYTARABINE [Suspect]
     Active Substance: CYTARABINE
     Indication: B precursor type acute leukaemia
     Dosage: UNK, HIGH DOSE
     Route: 065
     Dates: start: 2018
  10. METHOTREXATE [Suspect]
     Active Substance: METHOTREXATE
     Indication: B precursor type acute leukaemia
     Dosage: UNK, HIGH DOSE
     Route: 065
     Dates: start: 2018

REACTIONS (1)
  - Drug resistance [Unknown]
